FAERS Safety Report 19746145 (Version 1)
Quarter: 2021Q3

REPORT INFORMATION
  Report Type: Spontaneous
  Country: US (occurrence: US)
  Receive Date: 20210825
  Receipt Date: 20210825
  Transmission Date: 20211014
  Serious: No
  Sender: FDA-Public Use
  Company Number: US-MYLANLABS-2021M1047836

PATIENT
  Sex: Male
  Weight: 91 kg

DRUGS (2)
  1. MUSE [Suspect]
     Active Substance: ALPROSTADIL
     Indication: ERECTILE DYSFUNCTION
     Dosage: 1000 MICROGRAM, PRN
     Route: 066
  2. MUSE [Suspect]
     Active Substance: ALPROSTADIL
     Dosage: 1000 MICROGRAM, PRN
     Route: 066

REACTIONS (1)
  - Product storage error [Not Recovered/Not Resolved]
